FAERS Safety Report 7990706-X (Version None)
Quarter: 2011Q4

REPORT INFORMATION
  Report Type: 
  Country: None (occurrence: None)
  Receive Date: 20111219
  Receipt Date: 20111219
  Transmission Date: 20120403
  Serious: Yes (Hospitalization, Other)
  Sender: FDA-Public Use
  Company Number: None

PATIENT
  Sex: Female
  Weight: 129.27 kg

DRUGS (1)
  1. SPRINTEC [Suspect]
     Indication: CONTRACEPTION
     Dosage: 1 PILL
     Route: 048
     Dates: start: 20110212, end: 20111212

REACTIONS (4)
  - PANIC ATTACK [None]
  - ANXIETY [None]
  - BLOOD PRESSURE ABNORMAL [None]
  - THYROID DISORDER [None]
